FAERS Safety Report 8805570 (Version 2)
Quarter: 2012Q4

REPORT INFORMATION
  Report Type: 
  Country: US (occurrence: US)
  Receive Date: 20120924
  Receipt Date: 20121002
  Transmission Date: 20130627
  Serious: Yes (Hospitalization, Other)
  Sender: FDA-Public Use
  Company Number: US-BAXTER-2012BAX017441

PATIENT
  Age: 88 Year
  Sex: Male

DRUGS (3)
  1. DIANEAL LOW CALCIUM [Suspect]
     Indication: PERITONEAL DIALYSIS
     Route: 033
     Dates: end: 20120914
  2. EXTRANEAL [Suspect]
     Indication: PERITONEAL DIALYSIS
     Route: 033
     Dates: end: 20120914
  3. CEFTAZIDIME [Suspect]
     Indication: PERITONITIS BACTERIAL
     Route: 065

REACTIONS (2)
  - Intestinal perforation [Recovering/Resolving]
  - Peritonitis bacterial [Recovering/Resolving]
